FAERS Safety Report 15408464 (Version 1)
Quarter: 2018Q3

REPORT INFORMATION
  Report Type: Spontaneous
  Country: US (occurrence: US)
  Receive Date: 20180920
  Receipt Date: 20180920
  Transmission Date: 20181010
  Serious: No
  Sender: FDA-Public Use
  Company Number: US-TARO-2018TAR00335

PATIENT
  Age: 71 Year
  Sex: Male
  Weight: 83.9 kg

DRUGS (6)
  1. CLOTRIMAZOLE TOPICAL SOLUTION USP 1% [Suspect]
     Active Substance: CLOTRIMAZOLE
     Indication: ONYCHOMYCOSIS
     Dosage: 1 DROP, 2X/DAY
     Route: 061
     Dates: start: 2017
  2. ASPIRIN. [Concomitant]
     Active Substance: ASPIRIN
  3. CITALOPRAM [Concomitant]
     Active Substance: CITALOPRAM HYDROBROMIDE
  4. SYNTHROID [Concomitant]
     Active Substance: LEVOTHYROXINE SODIUM
  5. ROSUVASTATIN. [Concomitant]
     Active Substance: ROSUVASTATIN
  6. LISINOPRIL. [Concomitant]
     Active Substance: LISINOPRIL

REACTIONS (5)
  - Scab [Not Recovered/Not Resolved]
  - Drug ineffective for unapproved indication [Not Recovered/Not Resolved]
  - Product administered at inappropriate site [Not Recovered/Not Resolved]
  - Nail discolouration [Not Recovered/Not Resolved]
  - Skin discolouration [Not Recovered/Not Resolved]

NARRATIVE: CASE EVENT DATE: 2017
